FAERS Safety Report 13886563 (Version 3)
Quarter: 2017Q3

REPORT INFORMATION
  Report Type: Spontaneous
  Country: JP (occurrence: JP)
  Receive Date: 20170821
  Receipt Date: 20170901
  Transmission Date: 20171127
  Serious: Yes (Other)
  Sender: FDA-Public Use
  Company Number: JP-PFIZER INC-2017356718

PATIENT
  Age: 73 Year
  Sex: Female

DRUGS (4)
  1. ABRAXANE [Suspect]
     Active Substance: PACLITAXEL
     Indication: PANCREATIC CARCINOMA STAGE IV
     Dosage: 100 MG/M2, CYCLIC, (ADMINISTERED EVERY 4 WEEKS ON DAYS 1, 8 AND 15)
  2. GEMCITABINE [Concomitant]
     Active Substance: GEMCITABINE\GEMCITABINE HYDROCHLORIDE
     Indication: PANCREATIC CARCINOMA STAGE IV
     Dosage: 800 MG/M2, CYCLIC, (ADMINISTERED EVERY 4 WEEKS ON DAYS 1, 8 AND 15)
  3. GEMCITABINE [Concomitant]
     Active Substance: GEMCITABINE\GEMCITABINE HYDROCHLORIDE
     Dosage: 800 MG/M2, CYCLIC (BIWEEKLY ADMINISTRATION ON DAYS 1 AND 15)
  4. ABRAXANE [Suspect]
     Active Substance: PACLITAXEL
     Dosage: 100 MG/M2, CYCLIC, BIWEEKLY (ADMINISTRATION ON DAYS 1 AND 15)

REACTIONS (2)
  - Cystoid macular oedema [Recovering/Resolving]
  - Product use in unapproved indication [Unknown]
